FAERS Safety Report 4287712-8 (Version None)
Quarter: 2004Q1

REPORT INFORMATION
  Report Type: 
  Country: None (occurrence: None)
  Receive Date: 20040209
  Receipt Date: 20030905
  Transmission Date: 20041129
  Serious: No
  Sender: FDA-Public Use
  Company Number: US-GLAXOSMITHKLINE-A0424892A

PATIENT
  Age: 55 Year
  Sex: Female
  Weight: 63.6 kg

DRUGS (4)
  1. PAXIL [Suspect]
     Indication: DEPRESSION
     Dosage: 25MG PER DAY
     Route: 048
     Dates: start: 20000101, end: 20030829
  2. PROTONIX [Concomitant]
  3. THYROID MEDICATION [Concomitant]
  4. HORMONE REPLACEMENT THERAPY [Concomitant]

REACTIONS (4)
  - ANXIETY [None]
  - CONVERSION DISORDER [None]
  - DRUG WITHDRAWAL SYNDROME [None]
  - MIGRAINE [None]
